FAERS Safety Report 9004307 (Version 4)
Quarter: 2013Q1

REPORT INFORMATION
  Report Type: Spontaneous
  Country: SE (occurrence: SE)
  Receive Date: 20130108
  Receipt Date: 20130307
  Transmission Date: 20140127
  Serious: Yes (Life-Threatening)
  Sender: FDA-Public Use
  Company Number: SE-ROCHE-1176595

PATIENT
  Age: 45 Year
  Sex: Male

DRUGS (5)
  1. ROACTEMRA [Suspect]
     Indication: PSORIATIC ARTHROPATHY
     Dosage: STRENGHT: 20 MG/ML
     Route: 042
     Dates: start: 20110721, end: 20121030
  2. METOJECT [Suspect]
     Indication: PSORIATIC ARTHROPATHY
     Route: 065
     Dates: start: 20100413, end: 20121113
  3. FOLACIN [Concomitant]
  4. PREDNISOLON [Concomitant]
  5. SELOKEN [Concomitant]
     Route: 065

REACTIONS (2)
  - Lung infiltration [Not Recovered/Not Resolved]
  - Interstitial lung disease [Not Recovered/Not Resolved]
